FAERS Safety Report 5784254-5 (Version None)
Quarter: 2008Q2

REPORT INFORMATION
  Report Type: 
  Country: None (occurrence: None)
  Receive Date: 20080624
  Receipt Date: 20070517
  Transmission Date: 20081010
  Serious: No
  Sender: FDA-Public Use
  Company Number: US-ASTRAZENECA-2007UW12336

PATIENT
  Sex: Male

DRUGS (4)
  1. PULMICORT-100 [Suspect]
     Indication: RESPIRATORY FUME INHALATION DISORDER
     Route: 055
  2. LASIX [Concomitant]
  3. LISINOPRIL [Concomitant]
  4. INSULIN [Concomitant]

REACTIONS (1)
  - MALAISE [None]
